FAERS Safety Report 9365745 (Version 3)
Quarter: 2013Q3

REPORT INFORMATION
  Report Type: Report from Study
  Country: AU (occurrence: AU)
  Receive Date: 20130625
  Receipt Date: 20130821
  Transmission Date: 20140515
  Serious: Yes (Other)
  Sender: FDA-Public Use
  Company Number: AU-JNJFOC-20130614159

PATIENT
  Sex: Female

DRUGS (8)
  1. SIMPONI [Suspect]
     Indication: PSORIATIC ARTHROPATHY
     Route: 058
     Dates: start: 20120120
  2. METHOTREXATE [Concomitant]
     Dosage: ADMINISTERED ON UNSPECIFIED DATE AND YEAR (FRIDAY)
     Route: 065
  3. FOLIC ACID [Concomitant]
     Route: 065
  4. HYDROXYCHLOROQUINE [Concomitant]
     Route: 065
  5. PARACETAMOL [Concomitant]
     Route: 065
  6. THYROXINE [Concomitant]
     Route: 065
  7. CALTRATE PLUS [Concomitant]
     Route: 065
  8. FISH OIL [Concomitant]
     Route: 065

REACTIONS (1)
  - Hodgkin^s disease [Unknown]
